FAERS Safety Report 5919184-9 (Version None)
Quarter: 2008Q4

REPORT INFORMATION
  Report Type: 
  Country: None (occurrence: None)
  Receive Date: 20081015
  Receipt Date: 20081008
  Transmission Date: 20090506
  Serious: Yes (Other)
  Sender: FDA-Public Use
  Company Number: ES-MERCK-0810ESP00012

PATIENT
  Age: 50 Year
  Sex: Male

DRUGS (4)
  1. ZETIA [Suspect]
     Indication: TYPE IIA HYPERLIPIDAEMIA
     Route: 048
     Dates: start: 20050101
  2. ATORVASTATIN CALCIUM [Concomitant]
     Indication: TYPE IIA HYPERLIPIDAEMIA
     Route: 048
  3. [THERAPY UNSPECIFIED] [Suspect]
     Indication: IMMUNOSUPPRESSANT DRUG THERAPY
     Route: 065
  4. [THERAPY UNSPECIFIED] [Suspect]
     Indication: HEART TRANSPLANT
     Route: 065

REACTIONS (1)
  - SQUAMOUS CELL CARCINOMA [None]
